FAERS Safety Report 12498402 (Version 2)
Quarter: 2016Q2

REPORT INFORMATION
  Report Type: Spontaneous
  Country: MX (occurrence: MX)
  Receive Date: 20160627
  Receipt Date: 20160630
  Transmission Date: 20160815
  Serious: Yes (Other)
  Sender: FDA-Public Use
  Company Number: MX-VIIV HEALTHCARE LIMITED-MX2016GSK089328

PATIENT
  Age: 37 Year
  Sex: Male
  Weight: 79.5 kg

DRUGS (2)
  1. EFAVIRENZ [Suspect]
     Active Substance: EFAVIRENZ
     Indication: PRODUCT USED FOR UNKNOWN INDICATION
     Dosage: UNK
     Route: 048
     Dates: start: 20160610, end: 20160618
  2. KIVEXA [Suspect]
     Active Substance: ABACAVIR SULFATE\LAMIVUDINE
     Indication: PRODUCT USED FOR UNKNOWN INDICATION
     Dosage: UNK
     Route: 048
     Dates: start: 20160610, end: 20160618

REACTIONS (11)
  - Rash generalised [Not Recovered/Not Resolved]
  - Urticaria [Unknown]
  - Laryngeal oedema [Recovered/Resolved]
  - Eosinophilia [Unknown]
  - Skin lesion [Not Recovered/Not Resolved]
  - Pyrexia [Recovered/Resolved]
  - Insomnia [Not Recovered/Not Resolved]
  - Face oedema [Recovered/Resolved]
  - Tachycardia [Recovered/Resolved]
  - Ill-defined disorder [Unknown]
  - Nausea [Recovered/Resolved]

NARRATIVE: CASE EVENT DATE: 20160618
